FAERS Safety Report 9817740 (Version 1)
Quarter: 2013Q4

REPORT INFORMATION
  Report Type: Spontaneous
  Country: US (occurrence: None)
  Receive Date: 20131223
  Receipt Date: 20131223
  Transmission Date: 20140711
  Serious: Yes (Other)
  Sender: FDA-Public Use
  Company Number: 219341

PATIENT
  Age: 61 Year
  Sex: Male

DRUGS (5)
  1. PICATO [Suspect]
     Indication: ACTINIC KERATOSIS
     Dosage: DERMAL
     Dates: start: 20121005
  2. WELLBUTRIN (BUPROPION) [Concomitant]
  3. MELOXICAM (MELOXICAM) [Concomitant]
  4. CELEXA (CITALOPRAM HYDROBROMIDE) [Concomitant]
  5. VIAGRA (SILDENAFIL) [Concomitant]

REACTIONS (4)
  - Application site burn [None]
  - Application site pain [None]
  - Application site erythema [None]
  - Application site exfoliation [None]
